FAERS Safety Report 16117354 (Version 8)
Quarter: 2020Q4

REPORT INFORMATION
  Report Type: Other
  Country: GB (occurrence: GB)
  Receive Date: 20190326
  Receipt Date: 20201105
  Transmission Date: 20210113
  Serious: Yes (Death, Hospitalization)
  Sender: FDA-Public Use
  Company Number: GB-ROCHE-2176586

PATIENT
  Age: 47 Year
  Sex: Female

DRUGS (50)
  1. CITALOPRAM [Concomitant]
     Active Substance: CITALOPRAM HYDROBROMIDE
     Route: 048
  2. SALBUTAMOL [Concomitant]
     Active Substance: ALBUTEROL
     Route: 055
  3. DIAMORPHINE [Concomitant]
     Active Substance: DIAMORPHINE
     Indication: BONE PAIN
     Route: 042
     Dates: start: 20190324, end: 20190324
  4. MIDAZOLAM. [Concomitant]
     Active Substance: MIDAZOLAM
     Indication: BONE PAIN
     Route: 058
     Dates: start: 20190515, end: 20190515
  5. SENNA [Concomitant]
     Active Substance: SENNA LEAF\SENNOSIDES\SENNOSIDES A AND B
     Route: 048
  6. MIDAZOLAM. [Concomitant]
     Active Substance: MIDAZOLAM
     Route: 058
     Dates: start: 20190515, end: 20190516
  7. SANDO K [Concomitant]
     Indication: HYPOKALAEMIA
     Route: 048
     Dates: start: 20190513, end: 20190513
  8. NYSTATIN. [Concomitant]
     Active Substance: NYSTATIN
     Indication: ORAL CANDIDIASIS
     Route: 048
     Dates: start: 20190508, end: 20190512
  9. LETROZOLE. [Suspect]
     Active Substance: LETROZOLE
     Indication: BREAST CANCER
     Route: 048
     Dates: start: 201709
  10. ORAMORPH [Concomitant]
     Active Substance: MORPHINE SULFATE
     Route: 048
     Dates: start: 20190506, end: 20190513
  11. PARACETAMOL [Concomitant]
     Active Substance: ACETAMINOPHEN
     Indication: BONE PAIN
     Route: 048
  12. FLU VACCINE [Concomitant]
     Active Substance: INFLUENZA VIRUS VACCINE
     Route: 058
     Dates: start: 20171211, end: 20171211
  13. DIAMORPHINE [Concomitant]
     Active Substance: DIAMORPHINE
     Route: 058
     Dates: start: 20190514, end: 20190515
  14. MIDAZOLAM. [Concomitant]
     Active Substance: MIDAZOLAM
     Route: 058
     Dates: start: 20190514, end: 20190515
  15. GLYCOPYRONIUM [Concomitant]
     Active Substance: GLYCOPYRRONIUM
     Route: 058
     Dates: start: 20190515, end: 20190517
  16. LEVOMEPROMAZINE [Concomitant]
     Active Substance: LEVOMEPROMAZINE
     Route: 058
     Dates: start: 20190515, end: 20190515
  17. DEXAMETHASONE. [Concomitant]
     Active Substance: DEXAMETHASONE
     Route: 048
     Dates: start: 20190510, end: 20190513
  18. MIDAZOLAM. [Concomitant]
     Active Substance: MIDAZOLAM
     Route: 058
     Dates: start: 20190516, end: 20190517
  19. LORAZEPAM. [Concomitant]
     Active Substance: LORAZEPAM
     Route: 048
     Dates: start: 20190514, end: 20190514
  20. DEXAMETHASONE. [Concomitant]
     Active Substance: DEXAMETHASONE
     Route: 048
     Dates: start: 20190514, end: 20190515
  21. MORPHINE [Concomitant]
     Active Substance: MORPHINE
     Indication: BONE PAIN
     Route: 042
     Dates: start: 20190324, end: 20190324
  22. DIAMORPHINE [Concomitant]
     Active Substance: DIAMORPHINE
     Route: 058
     Dates: start: 20190516, end: 20190517
  23. MIDAZOLAM. [Concomitant]
     Active Substance: MIDAZOLAM
     Route: 058
     Dates: start: 20190515, end: 20190516
  24. GLYCOPYRONIUM [Concomitant]
     Active Substance: GLYCOPYRRONIUM
     Route: 058
     Dates: start: 20190515, end: 20190516
  25. DEXAMETHASONE. [Concomitant]
     Active Substance: DEXAMETHASONE
     Route: 048
     Dates: start: 20190501, end: 20190501
  26. TRASTUZUMAB. [Suspect]
     Active Substance: TRASTUZUMAB
     Indication: BREAST CANCER
     Route: 058
     Dates: start: 20170918, end: 20181205
  27. GABAPENTIN. [Concomitant]
     Active Substance: GABAPENTIN
     Route: 048
     Dates: start: 20190324, end: 20190513
  28. PARACETAMOL [Concomitant]
     Active Substance: ACETAMINOPHEN
     Route: 042
     Dates: start: 20190324, end: 20190515
  29. DENOSUMAB [Concomitant]
     Active Substance: DENOSUMAB
     Route: 058
     Dates: start: 20171007, end: 20181120
  30. ZOMORPH [Concomitant]
     Active Substance: MORPHINE SULFATE
     Indication: MUSCULOSKELETAL CHEST PAIN
     Route: 048
     Dates: start: 20190116
  31. DIAMORPHINE [Concomitant]
     Active Substance: DIAMORPHINE
     Route: 058
     Dates: start: 20190515, end: 20190516
  32. DIAMORPHINE [Concomitant]
     Active Substance: DIAMORPHINE
     Route: 058
     Dates: start: 20190514, end: 20190515
  33. MIDAZOLAM. [Concomitant]
     Active Substance: MIDAZOLAM
     Route: 058
     Dates: start: 20190514, end: 20190514
  34. FLUCLOXACILLIN [Concomitant]
     Active Substance: FLUCLOXACILLIN
     Indication: SKIN INFECTION
     Route: 048
     Dates: start: 20180803, end: 20180810
  35. LEVOMEPROMAZINE [Concomitant]
     Active Substance: LEVOMEPROMAZINE
     Indication: RESTLESSNESS
     Route: 058
     Dates: start: 20190515, end: 20190516
  36. LEVOMEPROMAZINE [Concomitant]
     Active Substance: LEVOMEPROMAZINE
     Route: 058
     Dates: start: 20190516, end: 20190517
  37. HALOPERIDOL. [Concomitant]
     Active Substance: HALOPERIDOL
     Route: 058
     Dates: start: 20190514, end: 20190514
  38. DEXAMETHASONE. [Concomitant]
     Active Substance: DEXAMETHASONE
     Route: 048
     Dates: start: 20190502, end: 20190509
  39. INHIXA [Concomitant]
     Active Substance: ENOXAPARIN SODIUM
     Route: 058
     Dates: start: 20190501, end: 20190513
  40. TRASTUZUMAB EMTANSINE [Suspect]
     Active Substance: ADO-TRASTUZUMAB EMTANSINE
     Indication: BREAST CANCER
     Route: 042
     Dates: start: 20190115
  41. ORAMORPH [Concomitant]
     Active Substance: MORPHINE SULFATE
     Indication: BONE PAIN
     Route: 048
     Dates: end: 20171002
  42. GABAPENTIN. [Concomitant]
     Active Substance: GABAPENTIN
     Indication: MUSCULOSKELETAL CHEST PAIN
     Route: 048
     Dates: end: 20181220
  43. GABAPENTIN. [Concomitant]
     Active Substance: GABAPENTIN
     Indication: BONE PAIN
     Dosage: 300MG MORNING AND 600MG EVENING
     Route: 048
     Dates: start: 20181229
  44. LANSOPRAZOLE. [Concomitant]
     Active Substance: LANSOPRAZOLE
     Route: 048
  45. IBUPROFEN. [Concomitant]
     Active Substance: IBUPROFEN
     Route: 048
  46. CALCICHEW D3 FORTE [Concomitant]
     Active Substance: CALCIUM\CHOLECALCIFEROL
     Dosage: DOSE: 1 TABLET
     Route: 048
     Dates: start: 20171007
  47. LAXIDO [Concomitant]
     Active Substance: POLYETHYLENE GLYCOL 3350\POTASSIUM CHLORIDE\SODIUM BICARBONATE\SODIUM CHLORIDE
     Dosage: DOSE: 1 SACHET
     Route: 048
  48. DIAMORPHINE [Concomitant]
     Active Substance: DIAMORPHINE
     Route: 058
     Dates: start: 20190514, end: 20190514
  49. DIAMORPHINE [Concomitant]
     Active Substance: DIAMORPHINE
     Route: 058
     Dates: start: 20190515, end: 20190516
  50. DIFFLAM [Concomitant]
     Active Substance: BENZYDAMINE HYDROCHLORIDE
     Route: 061
     Dates: start: 20190513, end: 20190513

REACTIONS (8)
  - Arthralgia [Recovered/Resolved]
  - Pneumonia [Fatal]
  - Neck pain [Recovered/Resolved]
  - Sinusitis [Recovered/Resolved]
  - Hypoaesthesia [Not Recovered/Not Resolved]
  - Skin infection [Recovered/Resolved]
  - Pain in extremity [Not Recovered/Not Resolved]
  - Oral candidiasis [Recovered/Resolved]

NARRATIVE: CASE EVENT DATE: 20180305
